FAERS Safety Report 4497859-9 (Version None)
Quarter: 2005Q1

REPORT INFORMATION
  Report Type: 
  Country: None (occurrence: None)
  Receive Date: 20041110
  Receipt Date: 20041104
  Transmission Date: 20050727
  Serious: Yes (Death, Hospitalization)
  Sender: FDA-Public Use
  Company Number: 2004-0281

PATIENT
  Age: 84 Year
  Sex: Female

DRUGS (8)
  1. RANIPLEX [Suspect]
     Indication: ILL-DEFINED DISORDER
     Route: 048
  2. CORDARONE [Suspect]
     Dosage: 200MG PER DAY
     Route: 048
  3. VEINAMITOL [Suspect]
     Route: 048
  4. VASTAREL [Suspect]
     Route: 048
  5. HYDREA [Suspect]
     Route: 048
  6. ZOCOR [Suspect]
     Route: 048
  7. ACUITEL [Suspect]
     Route: 048
  8. PLAVIX [Suspect]
     Dosage: 1UNIT PER DAY
     Route: 048

REACTIONS (3)
  - DYSPNOEA [None]
  - INTERSTITIAL LUNG DISEASE [None]
  - PYREXIA [None]
